FAERS Safety Report 6586197-6 (Version None)
Quarter: 2010Q1

REPORT INFORMATION
  Report Type: 
  Country: None (occurrence: None)
  Receive Date: 20100217
  Receipt Date: 20100216
  Transmission Date: 20100710
  Serious: Yes (Death, Other)
  Sender: FDA-Public Use
  Company Number: US-GILEAD-2009-0024614

PATIENT
  Sex: Male

DRUGS (12)
  1. LETAIRIS [Suspect]
     Indication: PULMONARY ARTERIAL HYPERTENSION
  2. NITROGLYCERIN [Concomitant]
  3. DIGITALIS TAB [Concomitant]
  4. COUMADIN [Concomitant]
  5. TYLENOL-500 [Concomitant]
  6. PRAVACHOL [Concomitant]
  7. PEPCID [Concomitant]
  8. POTASSIUM [Concomitant]
  9. LATANOPROST [Concomitant]
  10. CELEXA [Concomitant]
  11. ZOFRAN [Concomitant]
  12. MUCOMYST [Concomitant]

REACTIONS (3)
  - DEATH [None]
  - LIVER FUNCTION TEST ABNORMAL [None]
  - RENAL FAILURE ACUTE [None]
